FAERS Safety Report 19459308 (Version 1)
Quarter: 2021Q2

REPORT INFORMATION
  Report Type: Spontaneous
  Country: US (occurrence: US)
  Receive Date: 20210624
  Receipt Date: 20210624
  Transmission Date: 20210717
  Serious: No
  Sender: FDA-Public Use
  Company Number: US-TAKEDA-2021TUS038291

PATIENT
  Sex: Female
  Weight: 81 kg

DRUGS (1)
  1. CARBATROL [Suspect]
     Active Substance: CARBAMAZEPINE
     Indication: IDIOPATHIC GENERALISED EPILEPSY
     Dosage: 300 MILLIGRAM, BID
     Route: 048
     Dates: start: 201703, end: 20200124

REACTIONS (2)
  - No adverse event [Unknown]
  - Product availability issue [Unknown]
